FAERS Safety Report 17246649 (Version 8)
Quarter: 2021Q1

REPORT INFORMATION
  Report Type: Spontaneous
  Country: US (occurrence: US)
  Receive Date: 20200108
  Receipt Date: 20210303
  Transmission Date: 20210419
  Serious: Yes (Other)
  Sender: FDA-Public Use
  Company Number: US-PFIZER INC-2020004121

PATIENT
  Age: 61 Year
  Sex: Female
  Weight: 56.7 kg

DRUGS (9)
  1. PREMARIN [Suspect]
     Active Substance: ESTROGENS, CONJUGATED
     Dosage: UNK (1 APPLICATOR QD (ONCE A DAY) 3 MONTHS)
  2. POTASSIUM [Concomitant]
     Active Substance: POTASSIUM
     Dosage: UNK
  3. PREMARIN [Suspect]
     Active Substance: ESTROGENS, CONJUGATED
     Dosage: 0.5 MG, 1X/DAY
  4. SYNTHROID [Concomitant]
     Active Substance: LEVOTHYROXINE SODIUM
     Dosage: UNK
  5. PREMARIN [Suspect]
     Active Substance: ESTROGENS, CONJUGATED
     Indication: VULVOVAGINAL DRYNESS
     Dosage: UNK, ALTERNATE DAY [USE SMALL AMOUNT ON HER FINGERTIP APPLIED EVERY OTHER DAY]
     Route: 067
  6. PROTONIX [OMEPRAZOLE] [Concomitant]
     Active Substance: OMEPRAZOLE
     Dosage: UNK
  7. TOPAMAX [Concomitant]
     Active Substance: TOPIRAMATE
     Dosage: UNK
  8. RECLAST [Concomitant]
     Active Substance: ZOLEDRONIC ACID
     Dosage: UNK
  9. AMITIZA [Concomitant]
     Active Substance: LUBIPROSTONE
     Dosage: UNK

REACTIONS (7)
  - Glaucoma [Unknown]
  - Visual impairment [Unknown]
  - Eye disorder [Unknown]
  - Laryngitis [Not Recovered/Not Resolved]
  - Cough [Unknown]
  - Off label use [Unknown]
  - Lymphoedema [Unknown]

NARRATIVE: CASE EVENT DATE: 20191223
